FAERS Safety Report 5749332-5 (Version None)
Quarter: 2008Q2

REPORT INFORMATION
  Report Type: 
  Country: None (occurrence: None)
  Receive Date: 20080527
  Receipt Date: 20080527
  Transmission Date: 20081010
  Serious: Yes (Death, Hospitalization, Other)
  Sender: FDA-Public Use
  Company Number: None

PATIENT
  Age: 69 Year
  Sex: Male
  Weight: 107.0489 kg

DRUGS (2)
  1. HEPARIN [Suspect]
     Indication: DIALYSIS
     Dates: start: 20070624, end: 20070703
  2. IMURAN [Suspect]

REACTIONS (9)
  - ACTIVATED PARTIAL THROMBOPLASTIN TIME PROLONGED [None]
  - ENTEROBACTER INFECTION [None]
  - HAEMORRHAGE [None]
  - INFECTION [None]
  - NOSOCOMIAL INFECTION [None]
  - OVERDOSE [None]
  - PATHOGEN RESISTANCE [None]
  - PHARMACEUTICAL PRODUCT COMPLAINT [None]
  - SEPTIC SHOCK [None]
